FAERS Safety Report 21169916 (Version 3)
Quarter: 2024Q1

REPORT INFORMATION
  Report Type: Spontaneous
  Country: FR (occurrence: FR)
  Receive Date: 20220804
  Receipt Date: 20240328
  Transmission Date: 20240410
  Serious: Yes (Hospitalization, Other)
  Sender: FDA-Public Use
  Company Number: FR-ORGANON-O2208FRA000254

PATIENT
  Sex: Female
  Weight: 56 kg

DRUGS (1)
  1. NEXPLANON [Suspect]
     Active Substance: ETONOGESTREL
     Indication: Contraception
     Dosage: 1 IMPLANT
     Route: 058
     Dates: start: 20190516, end: 20220720

REACTIONS (7)
  - Device dislocation [Recovered/Resolved]
  - Thoracotomy [Recovering/Resolving]
  - Device embolisation [Recovered/Resolved]
  - Surgery [Unknown]
  - Complication of device removal [Recovered/Resolved]
  - Product quality issue [Unknown]
  - Incorrect product administration duration [Unknown]

NARRATIVE: CASE EVENT DATE: 20220101
